FAERS Safety Report 6043380-6 (Version None)
Quarter: 2009Q1

REPORT INFORMATION
  Report Type: 
  Country: None (occurrence: None)
  Receive Date: 20090120
  Receipt Date: 20090113
  Transmission Date: 20090719
  Serious: Yes (Other)
  Sender: FDA-Public Use
  Company Number: US-ASTRAZENECA-2009UW01091

PATIENT
  Age: 72 Year
  Sex: Female
  Weight: 92.5 kg

DRUGS (4)
  1. NEXIUM [Suspect]
     Indication: BARRETT'S OESOPHAGUS
     Route: 048
     Dates: start: 20070101
  2. ARICEPT [Concomitant]
  3. PLAVIX [Concomitant]
  4. DILANTIN [Concomitant]

REACTIONS (2)
  - MYOCARDIAL INFARCTION [None]
  - STENT PLACEMENT [None]
